FAERS Safety Report 5256038-8 (Version None)
Quarter: 2007Q1

REPORT INFORMATION
  Report Type: 
  Country: None (occurrence: None)
  Receive Date: 20070302
  Receipt Date: 20070302
  Transmission Date: 20070707
  Serious: Yes (Hospitalization)
  Sender: FDA-Public Use
  Company Number: None

PATIENT
  Sex: Female
  Weight: 69.8539 kg

DRUGS (2)
  1. RITUXIMAB [Suspect]
     Indication: NON-HODGKIN'S LYMPHOMA
     Dosage: 667.5 MG WEEKLY X4 INTRAVENOUS
     Route: 042
     Dates: start: 20070219
  2. RITUXIMAB [Suspect]
     Indication: NON-HODGKIN'S LYMPHOMA
     Dosage: 667.5 MG WEEKLY X4 INTRAVENOUS
     Route: 042
     Dates: start: 20070228

REACTIONS (4)
  - ATRIAL FLUTTER [None]
  - BACK PAIN [None]
  - HEART RATE IRREGULAR [None]
  - PYREXIA [None]
